FAERS Safety Report 10627878 (Version 1)
Quarter: 2014Q4

REPORT INFORMATION
  Report Type: Spontaneous
  Country: US (occurrence: US)
  Receive Date: 20141205
  Receipt Date: 20141205
  Transmission Date: 20150529
  Serious: No
  Sender: FDA-Public Use
  Company Number: US-BRISTOL-MYERS SQUIBB COMPANY-21172093

PATIENT
  Age: 68 Year
  Sex: Male
  Weight: 72 kg

DRUGS (11)
  1. PRAVASTATIN SODIUM. [Suspect]
     Active Substance: PRAVASTATIN SODIUM
     Dosage: TABS
  2. AXITINIB [Concomitant]
     Active Substance: AXITINIB
     Dosage: 5 MG TABS?NO OF DOSES : 60?6 TIMES
     Route: 048
     Dates: start: 20140605
  3. CALCIUM [Concomitant]
     Active Substance: CALCIUM
     Dosage: CALCIUM 600
     Route: 048
  4. IBUPROFEN. [Concomitant]
     Active Substance: IBUPROFEN
  5. ZOFRAN [Concomitant]
     Active Substance: ONDANSETRON HYDROCHLORIDE
  6. SODIUM CHLORIDE. [Concomitant]
     Active Substance: SODIUM CHLORIDE
     Dosage: NACL 0.9%
     Route: 042
  7. VITAMIN D [Concomitant]
     Active Substance: CHOLECALCIFEROL
  8. SUTENT [Concomitant]
     Active Substance: SUNITINIB MALATE
     Indication: DISEASE PROGRESSION
     Dosage: 1DF=25MG,50MG,12.5MG CAPS
     Route: 048
     Dates: start: 20130619
  9. ZOMETA [Concomitant]
     Active Substance: ZOLEDRONIC ACID
     Dosage: 05MAR13-05JUN14
     Route: 042
     Dates: start: 20130305
  10. MULTIVITAMINS [Concomitant]
     Active Substance: VITAMINS
  11. LIPITOR [Concomitant]
     Active Substance: ATORVASTATIN CALCIUM

REACTIONS (1)
  - Drug hypersensitivity [Unknown]
